FAERS Safety Report 7430164-7 (Version None)
Quarter: 2011Q2

REPORT INFORMATION
  Report Type: 
  Country: None (occurrence: None)
  Receive Date: 20110421
  Receipt Date: 20110222
  Transmission Date: 20111010
  Serious: No
  Sender: FDA-Public Use
  Company Number: US-ASTRAZENECA-2011SE02086

PATIENT
  Age: 79 Year
  Sex: Male

DRUGS (3)
  1. TOPROL-XL [Suspect]
     Indication: HYPERTENSION
     Route: 048
  2. METOPROLOL SUCCINATE [Suspect]
     Indication: HYPERTENSION
     Route: 048
  3. METOPROLOL SUCCINATE [Suspect]
     Route: 048

REACTIONS (7)
  - PERIPHERAL COLDNESS [None]
  - BACK DISORDER [None]
  - DRUG INEFFECTIVE [None]
  - DRUG HYPERSENSITIVITY [None]
  - DECREASED ACTIVITY [None]
  - BLOOD PRESSURE INCREASED [None]
  - PRURITUS [None]
